FAERS Safety Report 23927730 (Version 2)
Quarter: 2024Q2

REPORT INFORMATION
  Report Type: Report from Study
  Country: HU (occurrence: HU)
  Receive Date: 20240531
  Receipt Date: 20240625
  Transmission Date: 20240715
  Serious: Yes (Death, Hospitalization)
  Sender: FDA-Public Use
  Company Number: HU-ABBVIE-5777071

PATIENT
  Age: 67 Year
  Sex: Male

DRUGS (3)
  1. CARBIDOPA\LEVODOPA [Suspect]
     Active Substance: CARBIDOPA\LEVODOPA
     Indication: Parkinson^s disease
     Dosage: MORNING DOSE: 8.5 ML; CONTINUOUS DOSE: 3.0 ML/HOUR; EXTRA DOSE: 2.5 ML/
     Route: 050
     Dates: start: 20140401, end: 20240513
  2. CARBIDOPA\LEVODOPA [Suspect]
     Active Substance: CARBIDOPA\LEVODOPA
  3. BENSERAZIDE HYDROCHLORIDE\LEVODOPA [Concomitant]
     Active Substance: BENSERAZIDE HYDROCHLORIDE\LEVODOPA
     Indication: Parkinson^s disease
     Dosage: 100 MG LEVODOPA, 25 MG BENSERAZIDE / TABLET?HALF TABLET AS REQUIRED
     Route: 048

REACTIONS (4)
  - General physical health deterioration [Fatal]
  - Gastritis erosive [Not Recovered/Not Resolved]
  - Pneumonia [Not Recovered/Not Resolved]
  - Embedded device [Recovering/Resolving]

NARRATIVE: CASE EVENT DATE: 20240501
